FAERS Safety Report 12079726 (Version 1)
Quarter: 2016Q1

REPORT INFORMATION
  Report Type: Spontaneous
  Country: SI (occurrence: SI)
  Receive Date: 20160216
  Receipt Date: 20160216
  Transmission Date: 20160526
  Serious: Yes (Other)
  Sender: FDA-Public Use
  Company Number: SI-TEVA-633857ISR

PATIENT
  Age: 67 Year
  Sex: Female

DRUGS (3)
  1. LACTECON [Concomitant]
     Dosage: IF NECESSARY
  2. CARBOPLATIN PLIVA KONCENTRAT ZA RAZTOPINO ZA INFUNDIRANJE 50 MG [Suspect]
     Active Substance: CARBOPLATIN
     Indication: NEOPLASM MALIGNANT
     Dosage: 400 MG; CONCENTRATE FOR SOLUTION FOR INFUSION
     Route: 042
     Dates: start: 20160114, end: 20160114
  3. DULCOLAX NOS [Concomitant]
     Active Substance: BISACODYL OR DOCUSATE SODIUM
     Dosage: IF NECESSARY
     Route: 054

REACTIONS (8)
  - Erythema of eyelid [Recovered/Resolved]
  - Sneezing [Recovered/Resolved]
  - Cough [Recovered/Resolved]
  - Infusion related reaction [Recovered/Resolved]
  - Angioedema [Recovered/Resolved]
  - Eyelids pruritus [Recovered/Resolved]
  - Swelling [Recovered/Resolved]
  - Pruritus [Recovered/Resolved]

NARRATIVE: CASE EVENT DATE: 20160114
